FAERS Safety Report 7692985-5 (Version None)
Quarter: 2011Q3

REPORT INFORMATION
  Report Type: 
  Country: None (occurrence: None)
  Receive Date: 20110819
  Receipt Date: 20110803
  Transmission Date: 20111222
  Serious: No
  Sender: FDA-Public Use
  Company Number: US-B.I. PHARMACEUTICALS,INC./RIDGEFIELD-2011-BP-15870BP

PATIENT
  Sex: Male
  Weight: 101.15 kg

DRUGS (20)
  1. OMEPRAZOLE [Concomitant]
     Indication: GASTROOESOPHAGEAL REFLUX DISEASE
     Dosage: 40 MG
     Route: 048
  2. AMBIEN [Concomitant]
     Indication: INSOMNIA
     Dosage: 10 MG
  3. NIACIN [Concomitant]
     Indication: SUPPLEMENTATION THERAPY
     Dosage: 500 MG
  4. CLEOCIN HYDROCHLORIDE [Concomitant]
     Indication: ACNE
  5. ATIVAN [Concomitant]
     Indication: ANXIETY
  6. RITALIN LA [Concomitant]
     Dosage: 60 MG
  7. TRIAMCINOLONE [Concomitant]
     Indication: RASH
  8. ASPIRIN [Concomitant]
     Dosage: 80 MG
  9. LITHIUM CARBONATE [Concomitant]
     Indication: BIPOLAR DISORDER
     Dosage: 900 MG
     Route: 048
  10. SIMVASTATIN [Concomitant]
     Indication: BLOOD CHOLESTEROL
     Dosage: 40 MG
     Route: 048
  11. PRADAXA [Suspect]
     Indication: CARDIAC DISORDER
  12. PRADAXA [Suspect]
     Indication: ANTICOAGULANT THERAPY
  13. COREG [Concomitant]
     Indication: ATRIAL FIBRILLATION
  14. VOLTAREN [Concomitant]
     Dosage: 150 MG
  15. LORAZEPAM [Concomitant]
     Indication: NERVOUSNESS
     Dosage: 3 MG
     Route: 048
  16. PRADAXA [Suspect]
     Indication: ATRIAL FIBRILLATION
     Dosage: 300 MG
     Route: 048
     Dates: start: 20110607, end: 20110621
  17. METFORMIN [Concomitant]
     Indication: DIABETES MELLITUS
  18. LISINOPRIL [Concomitant]
     Indication: HYPERTENSION
     Dosage: 5 MG
  19. COREG [Concomitant]
     Indication: HYPERTENSION
     Route: 048
  20. SEROQUEL [Concomitant]
     Indication: ANXIETY
     Dosage: 100 MG
     Route: 048

REACTIONS (5)
  - NERVOUSNESS [None]
  - SUICIDAL IDEATION [None]
  - ABDOMINAL PAIN UPPER [None]
  - DEPRESSION [None]
  - ANXIETY [None]
